FAERS Safety Report 11139363 (Version 1)
Quarter: 2015Q2

REPORT INFORMATION
  Report Type: Spontaneous
  Country: US (occurrence: US)
  Receive Date: 20150527
  Receipt Date: 20150527
  Transmission Date: 20150821
  Serious: No
  Sender: FDA-Public Use
  Company Number: US-MALLINCKRODT-T201404151

PATIENT
  Age: 67 Year
  Sex: Female

DRUGS (1)
  1. H.P. ACTHAR [Suspect]
     Active Substance: CORTICOTROPIN
     Indication: FIBRILLARY GLOMERULONEPHRITIS
     Dosage: 80 MG, BIWEEKLY
     Route: 058
     Dates: start: 20141028

REACTIONS (7)
  - Injection site haemorrhage [Unknown]
  - Swelling face [Unknown]
  - Abdominal discomfort [Unknown]
  - Injection site mass [Unknown]
  - Lacrimation increased [Unknown]
  - Skin atrophy [Unknown]
  - Increased appetite [Unknown]

NARRATIVE: CASE EVENT DATE: 2014
